FAERS Safety Report 10499857 (Version 1)
Quarter: 2014Q4

REPORT INFORMATION
  Report Type: Spontaneous
  Country: US (occurrence: US)
  Receive Date: 20141006
  Receipt Date: 20141006
  Transmission Date: 20150528
  Serious: Yes (Other)
  Sender: FDA-Public Use
  Company Number: US-GILEAD-2014-0117128

PATIENT
  Sex: Male

DRUGS (3)
  1. SOVALDI [Suspect]
     Active Substance: SOFOSBUVIR
     Indication: PRODUCT USED FOR UNKNOWN INDICATION
     Dosage: UNK
     Route: 065
     Dates: end: 201407
  2. OLYSIO [Concomitant]
     Active Substance: SIMEPREVIR
  3. RIBAVIRIN. [Concomitant]
     Active Substance: RIBAVIRIN

REACTIONS (1)
  - Hepatitis C [Unknown]
